FAERS Safety Report 5286740-3 (Version None)
Quarter: 2007Q2

REPORT INFORMATION
  Report Type: 
  Country: None (occurrence: None)
  Receive Date: 20070404
  Receipt Date: 20070328
  Transmission Date: 20071010
  Serious: Yes (Other)
  Sender: FDA-Public Use
  Company Number: GB-GLAXOSMITHKLINE-B0462956A

PATIENT
  Sex: Female

DRUGS (4)
  1. NIQUITIN CQ 2MG LOZENGE [Suspect]
     Dosage: 2MG SEE DOSAGE TEXT
     Route: 002
     Dates: start: 20060401
  2. ALENDRONIC ACID [Concomitant]
  3. NICOTINE [Concomitant]
  4. NICOTINE [Concomitant]

REACTIONS (2)
  - DEPENDENCE [None]
  - INTENTIONAL DRUG MISUSE [None]
